FAERS Safety Report 25859845 (Version 1)
Quarter: 2025Q3

REPORT INFORMATION
  Report Type: Spontaneous
  Country: US (occurrence: US)
  Receive Date: 20250929
  Receipt Date: 20250929
  Transmission Date: 20251021
  Serious: Yes (Other)
  Sender: SANOFI AVENTIS
  Company Number: US-SA-2025SA289227

PATIENT
  Age: 25 Year
  Sex: Female
  Weight: 63.5 kg

DRUGS (7)
  1. DUPIXENT [Suspect]
     Active Substance: DUPILUMAB
     Indication: Dermatitis atopic
     Dosage: 300 MG, QOW
     Route: 058
  2. BANZEL [Concomitant]
     Active Substance: RUFINAMIDE
  3. MUCINEX [Concomitant]
     Active Substance: GUAIFENESIN
  4. VITAMINS [Concomitant]
     Active Substance: VITAMINS
  5. XCOPRI [Concomitant]
     Active Substance: CENOBAMATE
  6. EPIDIOLEX [Concomitant]
     Active Substance: CANNABIDIOL
  7. CLOBAZAM [Concomitant]
     Active Substance: CLOBAZAM

REACTIONS (1)
  - Pertussis [Not Recovered/Not Resolved]

NARRATIVE: CASE EVENT DATE: 20250905
